FAERS Safety Report 18745623 (Version 1)
Quarter: 2021Q1

REPORT INFORMATION
  Report Type: Spontaneous
  Country: US (occurrence: US)
  Receive Date: 20210115
  Receipt Date: 20210115
  Transmission Date: 20210419
  Serious: Yes (Life-Threatening, Hospitalization, Other)
  Sender: FDA-Public Use
  Company Number: US-LUPIN PHARMACEUTICALS INC.-2021-00137

PATIENT
  Age: 37 Year
  Sex: Male

DRUGS (3)
  1. DIAZEPAM. [Suspect]
     Active Substance: DIAZEPAM
     Indication: CARDIOTOXICITY
     Dosage: 50 MILLIGRAM (APPROXIMATELY 1MG/KG)
     Route: 042
  2. HYDROXYCHLOROQUINE SULFATE TABLETS [Suspect]
     Active Substance: HYDROXYCHLOROQUINE SULFATE
     Indication: PRODUCT USED FOR UNKNOWN INDICATION
     Dosage: 80 DOSAGE FORM (80 TABLETS OF 200MG (16G) HYDROXYCHLOROQUINE)
     Route: 048
  3. DIAZEPAM. [Suspect]
     Active Substance: DIAZEPAM
     Indication: SEIZURE PROPHYLAXIS

REACTIONS (8)
  - Mental status changes [Recovered/Resolved]
  - Atrioventricular block complete [Recovering/Resolving]
  - Hypotension [Recovering/Resolving]
  - Toxicity to various agents [Recovered/Resolved]
  - Intentional overdose [Unknown]
  - Cardiotoxicity [Recovering/Resolving]
  - Hypokalaemia [Recovering/Resolving]
  - Bradycardia [Recovering/Resolving]
